FAERS Safety Report 14021808 (Version 1)
Quarter: 2017Q3

REPORT INFORMATION
  Report Type: Report from Study
  Country: US (occurrence: US)
  Receive Date: 20170928
  Receipt Date: 20170928
  Transmission Date: 20171128
  Serious: No
  Sender: FDA-Public Use
  Company Number: US-CLOVIS ONCOLOGY-CLO-2017-000832

PATIENT
  Sex: Female

DRUGS (1)
  1. RUBRACA [Suspect]
     Active Substance: RUCAPARIB CAMSYLATE
     Indication: OVARIAN CANCER
     Dosage: 600 MG, BID
     Route: 048
     Dates: start: 20170721

REACTIONS (15)
  - Vomiting [Unknown]
  - Blood pressure increased [Unknown]
  - Oral pain [Unknown]
  - Blood magnesium decreased [Unknown]
  - Liver function test increased [Unknown]
  - Hot flush [Unknown]
  - Abdominal discomfort [Unknown]
  - Nausea [Unknown]
  - Catheter removal [Unknown]
  - Hiccups [Unknown]
  - Dysgeusia [Unknown]
  - Fatigue [Not Recovered/Not Resolved]
  - Dyspnoea [Unknown]
  - Drug dose omission [Unknown]
  - Back pain [Unknown]

NARRATIVE: CASE EVENT DATE: 2017
